FAERS Safety Report 15241083 (Version 1)
Quarter: 2018Q3

REPORT INFORMATION
  Report Type: Spontaneous
  Country: US (occurrence: US)
  Receive Date: 20180711
  Receipt Date: 20180711
  Transmission Date: 20181010
  Serious: Yes (Hospitalization, Disabling)
  Sender: FDA-Public Use
  Company Number: None

PATIENT
  Age: 79 Year
  Sex: Male

DRUGS (16)
  1. MIDODRINE PROAMATINE [Concomitant]
  2. ELIQUIS [Suspect]
     Active Substance: APIXABAN
     Indication: ATRIAL FIBRILLATION
     Dosage: ?          QUANTITY:1 TABLET(S);?
     Route: 048
     Dates: start: 20180325, end: 20180502
  3. CEPHALEXIN KEFLEX [Concomitant]
  4. ONDANSETRON ZOFRAN [Concomitant]
  5. ASPIRIN. [Concomitant]
     Active Substance: ASPIRIN
  6. LIPITOR [Concomitant]
     Active Substance: ATORVASTATIN CALCIUM
  7. RIVAROXABAN XARELTO [Concomitant]
  8. AMIODARONE PACERONE, CORDARONE [Concomitant]
  9. POLYETHYLENE GLYCOL GLYCOLAX, MIRALAX [Concomitant]
  10. FINASTERIDE PROSCAR [Concomitant]
  11. INSULIN GLARGINE LANTUS SOLOSTAR [Concomitant]
  12. INSULIN LISPRO HUMALOG KWIKPEN [Concomitant]
  13. MELATONIN [Concomitant]
     Active Substance: MELATONIN
  14. ACETAMINOPHEN TYLENOL [Concomitant]
  15. DOCUSATE SODIUM?SENNOSIDES SENOKOT [Concomitant]
  16. RANITIDINE ZANTAC [Concomitant]

REACTIONS (4)
  - Cerebrovascular accident [None]
  - Memory impairment [None]
  - Visual impairment [None]
  - Asthenia [None]

NARRATIVE: CASE EVENT DATE: 20180405
